FAERS Safety Report 9454053 (Version 1)
Quarter: 2013Q3

REPORT INFORMATION
  Report Type: Spontaneous
  Country: US (occurrence: None)
  Receive Date: 20130809
  Receipt Date: 20130809
  Transmission Date: 20140515
  Serious: Yes (Other)
  Sender: FDA-Public Use
  Company Number: None

PATIENT
  Age: 79 Year
  Sex: Female
  Weight: 61 kg

DRUGS (2)
  1. WARFARIN SODIUM [Suspect]
     Route: 048
     Dates: start: 20130806
  2. WARFARIN SODIUM [Suspect]
     Route: 048

REACTIONS (1)
  - International normalised ratio increased [None]
